FAERS Safety Report 18900368 (Version 4)
Quarter: 2021Q1

REPORT INFORMATION
  Report Type: Report from Study
  Country: None (occurrence: US)
  Receive Date: 20210217
  Receipt Date: 20210309
  Transmission Date: 20210420
  Serious: Yes (Other)
  Sender: FDA-Public Use
  Company Number: US-ABBVIE-21K-163-3776086-00

PATIENT
  Age: 72 Year
  Sex: Male
  Weight: 84.44 kg

DRUGS (9)
  1. DUOPA [Suspect]
     Active Substance: CARBIDOPA\LEVODOPA
  2. CLONIDINE. [Concomitant]
     Active Substance: CLONIDINE
     Indication: HYPERTENSION
  3. FLUDROCORTISONE [Concomitant]
     Active Substance: FLUDROCORTISONE
     Indication: ATRIAL FIBRILLATION
  4. AMLODIPINE [Concomitant]
     Active Substance: AMLODIPINE BESYLATE
     Indication: HYPERTENSION
  5. DONEPEZIL. [Concomitant]
     Active Substance: DONEPEZIL
     Indication: DEMENTIA
  6. AMANTADINE. [Concomitant]
     Active Substance: AMANTADINE HYDROCHLORIDE
     Indication: PRODUCT USED FOR UNKNOWN INDICATION
  7. DUOPA [Suspect]
     Active Substance: CARBIDOPA\LEVODOPA
     Indication: PARKINSON^S DISEASE
     Route: 050
     Dates: start: 2017
  8. AMIODARONE [Concomitant]
     Active Substance: AMIODARONE
     Indication: ATRIAL FIBRILLATION
  9. GABAPENTIN. [Concomitant]
     Active Substance: GABAPENTIN
     Indication: RESTLESS LEGS SYNDROME

REACTIONS (20)
  - Dehydration [Unknown]
  - Back pain [Recovering/Resolving]
  - Blood pressure decreased [Recovering/Resolving]
  - Balance disorder [Not Recovered/Not Resolved]
  - Mobility decreased [Recovered/Resolved]
  - Fall [Unknown]
  - Adjustment disorder with depressed mood [Not Recovered/Not Resolved]
  - Dyspnoea [Recovering/Resolving]
  - Faeces soft [Recovering/Resolving]
  - Loss of consciousness [Unknown]
  - Urinary incontinence [Not Recovered/Not Resolved]
  - Scratch [Recovered/Resolved]
  - Blood thyroid stimulating hormone decreased [Recovering/Resolving]
  - Balance disorder [Recovered/Resolved]
  - Hemiparesis [Not Recovered/Not Resolved]
  - Mobility decreased [Unknown]
  - Hallucination [Recovering/Resolving]
  - General physical health deterioration [Not Recovered/Not Resolved]
  - Pain [Not Recovered/Not Resolved]
  - Dementia with Lewy bodies [Not Recovered/Not Resolved]

NARRATIVE: CASE EVENT DATE: 2020
